FAERS Safety Report 23842309 (Version 1)
Quarter: 2024Q2

REPORT INFORMATION
  Report Type: Spontaneous
  Country: US (occurrence: None)
  Receive Date: 20240509
  Receipt Date: 20240509
  Transmission Date: 20240716
  Serious: Yes (Hospitalization)
  Sender: FDA-Public Use
  Company Number: None

PATIENT
  Age: 78 Year
  Sex: Female
  Weight: 61.23 kg

DRUGS (18)
  1. OZEMPIC [Suspect]
     Active Substance: SEMAGLUTIDE
     Indication: Diabetes mellitus
     Dosage: OTHER QUANTITY : ONE A WEEK;?FREQUENCY : WEEKLY;?
     Route: 058
     Dates: start: 20240216, end: 20240408
  2. VITAMIN B12 [Concomitant]
     Active Substance: CYANOCOBALAMIN
  3. FOLIC ACID [Concomitant]
     Active Substance: FOLIC ACID
  4. VITAMIN D3 [Concomitant]
     Active Substance: CHOLECALCIFEROL
  5. CLOPIDOGREL [Concomitant]
     Active Substance: CLOPIDOGREL BISULFATE
  6. CYCLOSPORINE [Concomitant]
     Active Substance: CYCLOSPORINE
  7. GABAPENTIN [Concomitant]
     Active Substance: GABAPENTIN
  8. GLIMEPIRIDE [Concomitant]
     Active Substance: GLIMEPIRIDE
  9. GLUCOSE BLOOD [Concomitant]
  10. HUMALOG KWIKPEN [Concomitant]
     Active Substance: INSULIN LISPRO
  11. METFORMIN [Concomitant]
     Active Substance: METFORMIN HYDROCHLORIDE
  12. ONDANSETRON [Concomitant]
     Active Substance: ONDANSETRON
  13. ONETOUCH DELICA PLUS LANCET [Concomitant]
  14. PANTOPRAZOLE [Concomitant]
     Active Substance: PANTOPRAZOLE
  15. SUCRALFATE [Concomitant]
     Active Substance: SUCRALFATE
  16. TRESIBA [Concomitant]
     Active Substance: INSULIN DEGLUDEC
  17. TRULICITY [Concomitant]
     Active Substance: DULAGLUTIDE
  18. VITAMINS B COMPLEX [Concomitant]

REACTIONS (3)
  - Abdominal pain upper [None]
  - Vascular operation [None]
  - Drug ineffective [None]

NARRATIVE: CASE EVENT DATE: 20240429
